FAERS Safety Report 4697380-9 (Version None)
Quarter: 2005Q2

REPORT INFORMATION
  Report Type: 
  Country: None (occurrence: None)
  Receive Date: 20050621
  Receipt Date: 20050603
  Transmission Date: 20051028
  Serious: Yes (Other)
  Sender: FDA-Public Use
  Company Number: USA050699663

PATIENT
  Age: 18 Year
  Sex: Female
  Weight: 68 kg

DRUGS (1)
  1. HUMATROPE [Suspect]
     Indication: HYPOPITUITARISM
     Dosage: 2.5 MG EVERY OTHER DAY
     Dates: start: 19880312, end: 19910101

REACTIONS (8)
  - ANAEMIA [None]
  - GROWTH ACCELERATED [None]
  - LOSS OF CONSCIOUSNESS [None]
  - MENORRHAGIA [None]
  - OESTROGEN DEFICIENCY [None]
  - OSTEOPOROSIS [None]
  - PHARMACEUTICAL PRODUCT COMPLAINT [None]
  - THERAPEUTIC RESPONSE UNEXPECTED [None]
